FAERS Safety Report 4384260-1 (Version None)
Quarter: 2004Q2

REPORT INFORMATION
  Report Type: 
  Country: None (occurrence: None)
  Receive Date: 20040618
  Receipt Date: 20040607
  Transmission Date: 20050107
  Serious: Yes (Hospitalization)
  Sender: FDA-Public Use
  Company Number: HQWYE286907JUN04

PATIENT
  Age: 7 Year
  Sex: Female

DRUGS (2)
  1. CHILDREN'S ADVIL [Suspect]
     Indication: PYREXIA
     Dosage: 1 WEIGHT DOSE X 2/D ORAL
     Route: 048
     Dates: start: 20040404
  2. DOLIPRANE (PARACETAMOL) [Concomitant]

REACTIONS (4)
  - CHEST PAIN [None]
  - GASTROENTERITIS [None]
  - PLEURAL EFFUSION [None]
  - PNEUMONIA [None]
